FAERS Safety Report 11230835 (Version 1)
Quarter: 2015Q2

REPORT INFORMATION
  Report Type: Spontaneous
  Country: US (occurrence: None)
  Receive Date: 20150612
  Receipt Date: 20150612
  Transmission Date: 20150821
  Serious: Yes (Other)
  Sender: FDA-Public Use
  Company Number: 2015AP007725

PATIENT
  Age: 45 Year
  Sex: Male

DRUGS (2)
  1. TOPIRAMATE (TOPIRAMATE) TABLET [Suspect]
     Active Substance: TOPIRAMATE
     Indication: TEMPORAL LOBE EPILEPSY
  2. LAMOTRIGINE (LAMOTRIGINE) TABLET [Suspect]
     Active Substance: LAMOTRIGINE
     Indication: TEMPORAL LOBE EPILEPSY

REACTIONS (4)
  - Cognitive disorder [None]
  - Drug ineffective [None]
  - Loss of consciousness [None]
  - Headache [None]
